FAERS Safety Report 18956031 (Version 1)
Quarter: 2021Q1

REPORT INFORMATION
  Report Type: Spontaneous
  Country: MX (occurrence: MX)
  Receive Date: 20210301
  Receipt Date: 20210301
  Transmission Date: 20210420
  Serious: Yes (Other)
  Sender: FDA-Public Use
  Company Number: MX-GILEAD-2021-0515410

PATIENT
  Age: 20 Year
  Sex: Female
  Weight: 63 kg

DRUGS (3)
  1. FUROSEMIDE. [Concomitant]
     Active Substance: FUROSEMIDE
  2. BIKTARVY [Suspect]
     Active Substance: BICTEGRAVIR SODIUM\EMTRICITABINE\TENOFOVIR ALAFENAMIDE FUMARATE
     Indication: HIV INFECTION
     Dosage: 1 DOSAGE FORM, QD
     Route: 048
     Dates: start: 20190919, end: 20191208
  3. CAPTOPRIL. [Concomitant]
     Active Substance: CAPTOPRIL

REACTIONS (7)
  - Renal failure [Not Recovered/Not Resolved]
  - Nephrotic syndrome [Unknown]
  - Oedema peripheral [Unknown]
  - Abdominal pain lower [Unknown]
  - Back pain [Unknown]
  - Generalised oedema [Unknown]
  - Hypertension [Unknown]

NARRATIVE: CASE EVENT DATE: 20191009
